FAERS Safety Report 7450380 (Version 4)
Quarter: 2014Q3

REPORT INFORMATION
  Report Type: Spontaneous
  Country: DE (occurrence: DE)
  Receive Date: 20100701
  Receipt Date: 20140729
  Transmission Date: 20150326
  Serious: Yes (Life-Threatening, Hospitalization, Other)
  Sender: FDA-Public Use
  Company Number: DE-RANBAXY-2010RR-35242

PATIENT
  Age: 89 Year
  Sex: Male
  Weight: 92 kg

DRUGS (2)
  1. CORDAREX [Suspect]
     Active Substance: AMIODARONE
     Indication: PRODUCT USED FOR UNKNOWN INDICATION
     Dosage: UNK
     Route: 048
     Dates: start: 2000
  2. SIMVASTATIN. [Suspect]
     Active Substance: SIMVASTATIN
     Indication: PRODUCT USED FOR UNKNOWN INDICATION
     Dosage: 40 MG, QD
     Route: 048
     Dates: start: 2008, end: 20100401

REACTIONS (1)
  - Renal failure acute [Recovering/Resolving]

NARRATIVE: CASE EVENT DATE: 20100402
